FAERS Safety Report 4385145-7 (Version None)
Quarter: 2004Q2

REPORT INFORMATION
  Report Type: 
  Country: None (occurrence: None)
  Receive Date: 20040624
  Receipt Date: 20040624
  Transmission Date: 20050107
  Serious: Yes (Hospitalization)
  Sender: FDA-Public Use
  Company Number: None

PATIENT
  Sex: Female

DRUGS (11)
  1. TAXOL [Suspect]
     Indication: PANCREATIC CARCINOMA
     Dosage: 40 MG/M2 IV Q WK X 6
     Route: 042
     Dates: start: 20040405
  2. TAXOL [Suspect]
     Indication: PANCREATIC CARCINOMA
     Dosage: 40 MG/M2 IV Q WK X 6
     Route: 042
     Dates: start: 20040412
  3. TAXOL [Suspect]
     Indication: PANCREATIC CARCINOMA
     Dosage: 40 MG/M2 IV Q WK X 6
     Route: 042
     Dates: start: 20040419
  4. TAXOL [Suspect]
     Indication: PANCREATIC CARCINOMA
     Dosage: 40 MG/M2 IV Q WK X 6
     Route: 042
     Dates: start: 20040503
  5. TAXOL [Suspect]
     Indication: PANCREATIC CARCINOMA
     Dosage: 40 MG/M2 IV Q WK X 6
     Route: 042
     Dates: start: 20040513
  6. GEMZAR [Suspect]
     Indication: PANCREATIC CARCINOMA
     Dosage: 75 MG/M2 IV Q WK X6
     Route: 042
     Dates: start: 20040405
  7. GEMZAR [Suspect]
     Indication: PANCREATIC CARCINOMA
     Dosage: 75 MG/M2 IV Q WK X6
     Route: 042
     Dates: start: 20040412
  8. GEMZAR [Suspect]
     Indication: PANCREATIC CARCINOMA
     Dosage: 75 MG/M2 IV Q WK X6
     Route: 042
     Dates: start: 20040419
  9. GEMZAR [Suspect]
     Indication: PANCREATIC CARCINOMA
     Dosage: 75 MG/M2 IV Q WK X6
     Route: 042
     Dates: start: 20040503
  10. GEMZAR [Suspect]
     Indication: PANCREATIC CARCINOMA
     Dosage: 75 MG/M2 IV Q WK X6
     Route: 042
     Dates: start: 20040513
  11. TARCEVA [Suspect]
     Dosage: 75 MG /D PO QD
     Route: 048
     Dates: start: 20040405, end: 20040608

REACTIONS (6)
  - ASTHENIA [None]
  - BODY TEMPERATURE INCREASED [None]
  - CHOLANGITIS [None]
  - DEHYDRATION [None]
  - LIVER FUNCTION TEST ABNORMAL [None]
  - NAUSEA [None]
